FAERS Safety Report 23189382 (Version 1)
Quarter: 2023Q4

REPORT INFORMATION
  Report Type: Spontaneous
  Country: US (occurrence: US)
  Receive Date: 20231116
  Receipt Date: 20231116
  Transmission Date: 20240110
  Serious: No
  Sender: FDA-Public Use
  Company Number: US-CHIESI-2023CHF05212

PATIENT
  Sex: Male

DRUGS (12)
  1. BETHKIS [Suspect]
     Active Substance: TOBRAMYCIN
     Indication: Epilepsy
     Dosage: 1 DOSAGE FORM, BID
     Route: 055
  2. BETHKIS [Suspect]
     Active Substance: TOBRAMYCIN
     Indication: Brain injury
  3. BETHKIS [Suspect]
     Active Substance: TOBRAMYCIN
     Indication: Asthma
  4. BETHKIS [Suspect]
     Active Substance: TOBRAMYCIN
     Indication: Muscle contracture
  5. BETHKIS [Suspect]
     Active Substance: TOBRAMYCIN
     Indication: Pneumonia
  6. BETHKIS [Suspect]
     Active Substance: TOBRAMYCIN
     Indication: Gastrostomy
  7. BETHKIS [Suspect]
     Active Substance: TOBRAMYCIN
     Indication: Off label use
  8. BETHKIS [Suspect]
     Active Substance: TOBRAMYCIN
     Indication: Near drowning
  9. VIGABATRIN [Concomitant]
     Active Substance: VIGABATRIN
     Indication: Product used for unknown indication
     Dosage: UNK
  10. EPIDIOLEX [Concomitant]
     Active Substance: CANNABIDIOL
     Indication: Product used for unknown indication
     Dosage: UNK
  11. CEFIXIME [Concomitant]
     Active Substance: CEFIXIME
     Indication: Product used for unknown indication
     Dosage: UNK
  12. KEPPRA [Concomitant]
     Active Substance: LEVETIRACETAM
     Indication: Product used for unknown indication
     Dosage: UNK

REACTIONS (2)
  - Off label use [Unknown]
  - Off label use [Unknown]
